FAERS Safety Report 9599872 (Version 5)
Quarter: 2014Q1

REPORT INFORMATION
  Report Type: Report from Study
  Country: ES (occurrence: ES)
  Receive Date: 20131004
  Receipt Date: 20140205
  Transmission Date: 20141002
  Serious: Yes (Life-Threatening, Hospitalization)
  Sender: FDA-Public Use
  Company Number: ES-009507513-1309ESP014289

PATIENT
  Age: 61 Year
  Sex: Female
  Weight: 63 kg

DRUGS (6)
  1. BOCEPREVIR [Suspect]
     Indication: HEPATITIS C
     Dosage: 800 MG, Q8H
     Route: 048
     Dates: start: 20121128, end: 20130110
  2. PEGINTRON [Suspect]
     Indication: HEPATITIS C
     Dosage: 100 MICROGRAM, QW
     Route: 058
     Dates: start: 20121024, end: 20130110
  3. RIBAVIRIN [Suspect]
     Indication: HEPATITIS C
     Dosage: 400 MG, Q12H
     Route: 048
     Dates: start: 20121031
  4. ESERTIA [Concomitant]
     Indication: DEPRESSION
     Dosage: DAILY DOSAGE: 10 MG
     Route: 048
  5. DEPAKINE [Concomitant]
     Dosage: DAILY DOSAGE: 100 MG
     Route: 048
  6. ERYTHROPOIETIN [Concomitant]
     Indication: ANAEMIA
     Dosage: 30.000 IU, QW
     Route: 058
     Dates: start: 20121219

REACTIONS (5)
  - Pneumonia [Recovered/Resolved]
  - Neutropenia [Recovered/Resolved]
  - Influenza like illness [Recovered/Resolved]
  - Anaemia [Recovered/Resolved]
  - Asthenia [Recovered/Resolved]
